FAERS Safety Report 10609473 (Version 2)
Quarter: 2014Q4

REPORT INFORMATION
  Report Type: Spontaneous
  Country: JP (occurrence: JP)
  Receive Date: 20141126
  Receipt Date: 20141204
  Transmission Date: 20150529
  Serious: Yes (Other)
  Sender: FDA-Public Use
  Company Number: PHHY2014JP152881

PATIENT
  Age: 63 Year
  Sex: Male
  Weight: 47 kg

DRUGS (1)
  1. ONBREZ [Suspect]
     Active Substance: INDACATEROL
     Indication: EMPHYSEMA
     Dosage: 150 UG, QD
     Route: 055
     Dates: start: 201306, end: 201405

REACTIONS (4)
  - Incontinence [Recovered/Resolved]
  - Speech disorder [Recovered/Resolved]
  - Syncope [Recovered/Resolved]
  - Dyspnoea [Recovered/Resolved]
